FAERS Safety Report 4760516-5 (Version None)
Quarter: 2005Q3

REPORT INFORMATION
  Report Type: 
  Country: None (occurrence: None)
  Receive Date: 20050823
  Receipt Date: 20050428
  Transmission Date: 20060218
  Serious: Yes (Congenital Anomaly)
  Sender: FDA-Public Use
  Company Number: 403010

PATIENT
  Sex: Female

DRUGS (1)
  1. ACCUTANE [Suspect]
     Indication: ACNE
     Dosage: 20 MG DAILY
     Dates: start: 19941215, end: 19941215

REACTIONS (10)
  - CLEFT PALATE [None]
  - CONGENITAL CEREBELLAR AGENESIS [None]
  - CONGENITAL EYELID MALFORMATION [None]
  - CONGENITAL NOSE MALFORMATION [None]
  - EAR MALFORMATION [None]
  - EYE DISORDER [None]
  - FACIAL DYSMORPHISM [None]
  - HAIR GROWTH ABNORMAL [None]
  - HIRSUTISM [None]
  - IIIRD NERVE DISORDER [None]
